FAERS Safety Report 6233321-0 (Version None)
Quarter: 2009Q2

REPORT INFORMATION
  Report Type: 
  Country: None (occurrence: None)
  Receive Date: 20090612
  Receipt Date: 20090529
  Transmission Date: 20091009
  Serious: No
  Sender: FDA-Public Use
  Company Number: US-WYE-H09543109

PATIENT
  Sex: Male

DRUGS (3)
  1. EFFEXOR [Suspect]
     Dosage: TRANSPLACENTAL
     Route: 064
  2. LAMICTAL [Concomitant]
  3. SUBUTEX [Concomitant]

REACTIONS (5)
  - DRUG WITHDRAWAL SYNDROME NEONATAL [None]
  - EXCORIATION [None]
  - LIVEDO RETICULARIS [None]
  - MATERNAL DRUGS AFFECTING FOETUS [None]
  - NEONATAL TACHYPNOEA [None]
